FAERS Safety Report 19865044 (Version 1)
Quarter: 2021Q3

REPORT INFORMATION
  Report Type: Spontaneous
  Country: PT (occurrence: PT)
  Receive Date: 20210922
  Receipt Date: 20210922
  Transmission Date: 20211014
  Serious: Yes (Other)
  Sender: FDA-Public Use
  Company Number: PT-AUROBINDO-AUR-APL-2021-039329

PATIENT
  Age: 55 Year
  Sex: Female

DRUGS (5)
  1. PERINDOPRIL [Suspect]
     Active Substance: PERINDOPRIL
     Indication: HYPERTENSION
     Dosage: UNK
     Route: 048
  2. SEDOXIL [Suspect]
     Active Substance: MEXAZOLAM
     Indication: ANXIETY
     Dosage: 1 DOSAGE FORM, AS NECESSARY(1 MG/SOS. TOOK 1 DF ON 26?08?2021 )
     Route: 048
     Dates: start: 20210826
  3. ATORVASTATINA [Concomitant]
     Active Substance: ATORVASTATIN
     Indication: HYPERCHOLESTEROLAEMIA
     Dosage: UNK
     Route: 048
  4. BISOPROLOL [Suspect]
     Active Substance: BISOPROLOL
     Indication: ANXIETY
     Dosage: UNK
     Route: 048
     Dates: start: 20210826
  5. ESCITALOPRAM CLAMED [Suspect]
     Active Substance: ESCITALOPRAM OXALATE
     Indication: ANXIETY
     Dosage: 1 DOSAGE FORM, ONCE A DAY
     Route: 048
     Dates: start: 20210826, end: 20210830

REACTIONS (4)
  - Tension [Recovering/Resolving]
  - Somnolence [Recovering/Resolving]
  - Apathy [Recovering/Resolving]
  - Musculoskeletal stiffness [Recovering/Resolving]

NARRATIVE: CASE EVENT DATE: 20210830
